FAERS Safety Report 15201138 (Version 3)
Quarter: 2019Q2

REPORT INFORMATION
  Report Type: Spontaneous
  Country: US (occurrence: US)
  Receive Date: 20180726
  Receipt Date: 20190426
  Transmission Date: 20190711
  Serious: No
  Sender: FDA-Public Use
  Company Number: US-PFIZER INC-2018301155

PATIENT
  Age: 60 Year
  Sex: Male
  Weight: 88 kg

DRUGS (4)
  1. CAVERJECT IMPULSE [Suspect]
     Active Substance: ALPROSTADIL
     Indication: ERECTILE DYSFUNCTION
     Dosage: 20 UG, UNK
     Dates: start: 20170513
  2. CAVERJECT IMPULSE [Suspect]
     Active Substance: ALPROSTADIL
     Dosage: 20 UG, UNK
  3. CAVERJECT IMPULSE [Suspect]
     Active Substance: ALPROSTADIL
     Dosage: 10 MG, UNK, (AS NEEDED)
     Dates: start: 20170501
  4. CAVERJECT IMPULSE [Suspect]
     Active Substance: ALPROSTADIL
     Dosage: UNK

REACTIONS (1)
  - Drug ineffective [Unknown]

NARRATIVE: CASE EVENT DATE: 20180721
